FAERS Safety Report 10529882 (Version 1)
Quarter: 2014Q4

REPORT INFORMATION
  Report Type: Spontaneous
  Country: US (occurrence: US)
  Receive Date: 20141021
  Receipt Date: 20141021
  Transmission Date: 20150528
  Serious: Yes (Other)
  Sender: FDA-Public Use
  Company Number: US-CELGENE-USA-2014094053

PATIENT
  Sex: Male
  Weight: 86.26 kg

DRUGS (5)
  1. CYTOXAN [Concomitant]
     Active Substance: CYCLOPHOSPHAMIDE
     Indication: PLASMA CELL MYELOMA
     Route: 065
     Dates: start: 201205
  2. NEUPOGEN [Concomitant]
     Active Substance: FILGRASTIM
     Indication: PLASMA CELL MYELOMA
     Route: 065
     Dates: start: 201205
  3. REVLIMID [Suspect]
     Active Substance: LENALIDOMIDE
     Route: 048
     Dates: start: 201112
  4. KYPROLIS [Concomitant]
     Active Substance: CARFILZOMIB
     Indication: PLASMA CELL MYELOMA
     Route: 065
     Dates: start: 201205
  5. REVLIMID [Suspect]
     Active Substance: LENALIDOMIDE
     Indication: PLASMA CELL MYELOMA
     Route: 048
     Dates: start: 200812

REACTIONS (3)
  - Prostate cancer [Unknown]
  - Rash [Recovered/Resolved]
  - Blood immunoglobulin G increased [Recovered/Resolved]

NARRATIVE: CASE EVENT DATE: 2010
